FAERS Safety Report 13887091 (Version 1)
Quarter: 2017Q3

REPORT INFORMATION
  Report Type: Spontaneous
  Country: US (occurrence: US)
  Receive Date: 20170821
  Receipt Date: 20170821
  Transmission Date: 20171127
  Serious: No
  Sender: FDA-Public Use
  Company Number: US-ROCHE-1041843

PATIENT
  Sex: Female

DRUGS (1)
  1. ACTEMRA [Suspect]
     Active Substance: TOCILIZUMAB
     Indication: RHEUMATOID ARTHRITIS
     Route: 042
     Dates: start: 20120120

REACTIONS (5)
  - Eye pruritus [Unknown]
  - Oral herpes [Unknown]
  - Influenza [Unknown]
  - Oropharyngeal pain [Unknown]
  - Pruritus [Unknown]
